FAERS Safety Report 6561922-9 (Version None)
Quarter: 2010Q1

REPORT INFORMATION
  Report Type: 
  Country: None (occurrence: None)
  Receive Date: 20100130
  Receipt Date: 20091210
  Transmission Date: 20100710
  Serious: No
  Sender: FDA-Public Use
  Company Number: US-ABBOTT-09P-163-0580435-00

PATIENT
  Sex: Male
  Weight: 83.99 kg

DRUGS (11)
  1. HUMIRA [Suspect]
     Indication: RHEUMATOID ARTHRITIS
     Route: 058
     Dates: start: 20070729
  2. HUMIRA [Suspect]
     Indication: PSORIATIC ARTHROPATHY
  3. METROGEL [Concomitant]
     Indication: ROSACEA
  4. LIPITOR [Concomitant]
     Indication: DRUG USE FOR UNKNOWN INDICATION
  5. PERCOCET [Concomitant]
     Indication: PAIN
  6. METHOTREXATE [Concomitant]
     Indication: PSORIATIC ARTHROPATHY
  7. METHOTREXATE [Concomitant]
     Indication: RHEUMATOID ARTHRITIS
  8. VALIUM [Concomitant]
     Indication: DRUG USE FOR UNKNOWN INDICATION
  9. BLOOD PRESSURE MEDICATION [Concomitant]
     Indication: DRUG USE FOR UNKNOWN INDICATION
  10. LISINOPRIL [Concomitant]
     Indication: HYPERTENSION
  11. LOPID [Concomitant]
     Indication: BLOOD CHOLESTEROL INCREASED

REACTIONS (2)
  - OROPHARYNGEAL PAIN [None]
  - VIRAL INFECTION [None]
